FAERS Safety Report 10032650 (Version 1)
Quarter: 2014Q1

REPORT INFORMATION
  Report Type: Spontaneous
  Country: BR (occurrence: BR)
  Receive Date: 20140324
  Receipt Date: 20140324
  Transmission Date: 20141002
  Serious: Yes (Other)
  Sender: FDA-Public Use
  Company Number: BR-GLAXOSMITHKLINE-A1066335A

PATIENT
  Age: 59 Year
  Sex: Male
  Weight: 70 kg

DRUGS (2)
  1. COMBODART [Suspect]
     Indication: BENIGN PROSTATIC HYPERPLASIA
     Dosage: 1CAP PER DAY
     Route: 048
     Dates: start: 20140312, end: 20140312
  2. WARFARIN [Concomitant]
     Dates: start: 2012

REACTIONS (7)
  - Respiratory failure [Recovered/Resolved]
  - Fatigue [Recovered/Resolved]
  - Nasal obstruction [Recovered/Resolved]
  - Tachycardia [Recovered/Resolved]
  - Rhinitis [Recovered/Resolved]
  - Dizziness [Recovered/Resolved]
  - Depression [Recovered/Resolved]
